FAERS Safety Report 14353467 (Version 2)
Quarter: 2018Q1

REPORT INFORMATION
  Report Type: Spontaneous
  Country: US (occurrence: US)
  Receive Date: 20180105
  Receipt Date: 20180301
  Transmission Date: 20180509
  Serious: Yes (Hospitalization)
  Sender: FDA-Public Use
  Company Number: US-SUN PHARMACEUTICAL INDUSTRIES LTD-2017US-158822

PATIENT
  Age: 6 Month
  Sex: Male
  Weight: 6.3 kg

DRUGS (3)
  1. CHLOROTHIAZIDE. [Concomitant]
     Active Substance: CHLOROTHIAZIDE
     Indication: BRONCHOPULMONARY DYSPLASIA
     Dosage: 22.5 MG/KG, UNK
     Route: 065
  2. PREDNISONE. [Concomitant]
     Active Substance: PREDNISONE
     Indication: BRONCHOPULMONARY DYSPLASIA
     Dosage: 0.5 MG/KG, EVERY 48 HOURS
     Route: 065
  3. FUROSEMIDE. [Suspect]
     Active Substance: FUROSEMIDE
     Indication: BRONCHOPULMONARY DYSPLASIA
     Dosage: 3 MG/KG, DAILY
     Route: 065

REACTIONS (2)
  - Hypocalcaemia [Recovered/Resolved]
  - Hyperparathyroidism secondary [Recovered/Resolved]
